FAERS Safety Report 7405101-1 (Version None)
Quarter: 2011Q2

REPORT INFORMATION
  Report Type: 
  Country: None (occurrence: None)
  Receive Date: 20110411
  Receipt Date: 20110406
  Transmission Date: 20111010
  Serious: Yes (Other)
  Sender: FDA-Public Use
  Company Number: US-ROXANE LABORATORIES, INC.-2011-RO-00462RO

PATIENT
  Age: 27 Year
  Sex: Female

DRUGS (2)
  1. LIDOCAINE [Suspect]
     Indication: ANAESTHESIA
  2. EPINEPHRINE [Suspect]
     Indication: ANAESTHESIA

REACTIONS (3)
  - VISUAL ACUITY REDUCED [None]
  - PANIC REACTION [None]
  - BLINDNESS TRANSIENT [None]
